FAERS Safety Report 22125240 (Version 2)
Quarter: 2023Q2

REPORT INFORMATION
  Report Type: Spontaneous
  Country: US (occurrence: US)
  Receive Date: 20230322
  Receipt Date: 20230620
  Transmission Date: 20230722
  Serious: No
  Sender: FDA-Public Use
  Company Number: US-SA-SAC20230321000746

PATIENT
  Sex: Female

DRUGS (1)
  1. DUPIXENT [Suspect]
     Active Substance: DUPILUMAB
     Dosage: 300 MG, OTHER
     Route: 058

REACTIONS (9)
  - Dyspnoea [Unknown]
  - Wheezing [Unknown]
  - Nasal congestion [Unknown]
  - Speech disorder [Unknown]
  - Condition aggravated [Unknown]
  - Injection site pain [Unknown]
  - Injection site erythema [Unknown]
  - Product preparation error [Unknown]
  - Drug ineffective [Unknown]
